FAERS Safety Report 12467352 (Version 7)
Quarter: 2018Q2

REPORT INFORMATION
  Report Type: Spontaneous
  Country: US (occurrence: US)
  Receive Date: 20160615
  Receipt Date: 20180510
  Transmission Date: 20180711
  Serious: No
  Sender: FDA-Public Use
  Company Number: US-PFIZER INC-2016280413

PATIENT
  Age: 77 Year
  Sex: Female
  Weight: 60 kg

DRUGS (6)
  1. IBRANCE [Suspect]
     Active Substance: PALBOCICLIB
     Dosage: 125 MG, CYCLIC (1 CAPSULE DAILY D1-D21 EVERY 28D)
     Route: 048
  2. IBRANCE [Suspect]
     Active Substance: PALBOCICLIB
     Dosage: 125 MG, CYCLIC (D1-D21 EVERY 28D)
     Route: 048
     Dates: start: 20160427
  3. IBRANCE [Suspect]
     Active Substance: PALBOCICLIB
     Indication: BREAST CANCER METASTATIC
     Dosage: 125 MG, CYCLIC (D1-21 EVERY 28 DAYS)
     Route: 048
     Dates: start: 20160427
  4. IBRANCE [Suspect]
     Active Substance: PALBOCICLIB
     Dosage: 125 MG, CYCLIC (DAY 1-21 EVERY 28 DAYS)
     Route: 048
     Dates: start: 20160427
  5. IBRANCE [Suspect]
     Active Substance: PALBOCICLIB
     Dosage: 125 MG, CYCLIC(D1-21 Q28 DAYS)
     Route: 048
     Dates: start: 20160427
  6. FASLODEX [Suspect]
     Active Substance: FULVESTRANT
     Indication: BREAST CANCER
     Dosage: UNK, Q 4 WKS
     Route: 030

REACTIONS (6)
  - Epistaxis [Unknown]
  - Soft tissue disorder [Recovering/Resolving]
  - Mouth ulceration [Recovering/Resolving]
  - Stomatitis [Not Recovered/Not Resolved]
  - Swelling [Recovering/Resolving]
  - Injection site mass [Unknown]

NARRATIVE: CASE EVENT DATE: 20160527
